FAERS Safety Report 8797577 (Version 4)
Quarter: 2013Q4

REPORT INFORMATION
  Report Type: Report from Study
  Country: JP (occurrence: JP)
  Receive Date: 20120920
  Receipt Date: 20131009
  Transmission Date: 20140711
  Serious: Yes (Other)
  Sender: FDA-Public Use
  Company Number: JP-JNJFOC-20120907334

PATIENT
  Age: 84 Year
  Sex: Female
  Weight: 54 kg

DRUGS (5)
  1. REMINYL [Suspect]
     Indication: DEMENTIA ALZHEIMER^S TYPE
     Route: 048
     Dates: start: 20120502
  2. REMINYL [Suspect]
     Indication: DEMENTIA ALZHEIMER^S TYPE
     Route: 048
     Dates: start: 20120405, end: 20120501
  3. ALDACTONE A [Suspect]
     Indication: HYPERTENSION
     Route: 048
     Dates: end: 20120614
  4. FRANDOL [Concomitant]
     Indication: CARDIAC FAILURE CHRONIC
     Route: 062
  5. AVAPRO [Concomitant]
     Indication: HYPERTENSION
     Route: 048

REACTIONS (3)
  - Blood creatinine increased [Recovering/Resolving]
  - Blood urea increased [Unknown]
  - Influenza [Recovered/Resolved]
